FAERS Safety Report 4976382-9 (Version None)
Quarter: 2006Q2

REPORT INFORMATION
  Report Type: 
  Country: None (occurrence: None)
  Receive Date: 20060412
  Receipt Date: 20020214
  Transmission Date: 20061013
  Serious: Yes (Hospitalization)
  Sender: FDA-Public Use
  Company Number: 530#5#2002-00004

PATIENT
  Age: 77 Year
  Sex: Male

DRUGS (16)
  1. ALPROSTADIL [Suspect]
     Indication: INTERMITTENT CLAUDICATION
     Dosage: 5 TIMES 60 UG PER WEEK INTRAVENOUS DRIP
     Route: 041
     Dates: start: 20010514, end: 20010709
  2. BLINDED DRUG [Suspect]
     Dosage: 2 X 600 MG PER DAY ORAL; 4 X 300 MG (4 X 0.5 TABLETS) PER DAY ORAL
     Route: 048
     Dates: start: 20010514, end: 20010514
  3. BLINDED DRUG [Suspect]
     Dosage: 2 X 600 MG PER DAY ORAL; 4 X 300 MG (4 X 0.5 TABLETS) PER DAY ORAL
     Route: 048
     Dates: start: 20010515, end: 20010709
  4. MOLSIDOMINE 8 MG, TABLETS SR (MOLSIDOMINE) [Concomitant]
  5. FELODIPINE [Concomitant]
  6. ACETYLSALICYLIC ACID SRT [Concomitant]
  7. (CAPTOPRIL 25MG AND HYDROCHLOROTHIAZIDE 25MG), [Concomitant]
  8. MOXONIDINE (MOXONIDINE) [Concomitant]
  9. SIMVASTATIN [Concomitant]
  10. BORNAPRINE [Concomitant]
  11. LEVODOPA 50MG / BENSERAZIDE 12.5MG, CAPSULES (BENSERAZIDE HYDROCHLORID [Concomitant]
  12. ALLOPURINOL 100MG, TABLETS (ALLOPURINIOL) [Concomitant]
  13. HYDROCHLOROTHIAZIDE 25MG, TABLETS (HYDROCHLOROTHIAZIDE) [Concomitant]
  14. BISOPROLOL 5MG, TABLETS (BISOPROLOL) [Concomitant]
  15. FOSINOPRIL [Concomitant]
  16. PRAVASTATIN [Concomitant]

REACTIONS (29)
  - ABDOMINAL PAIN UPPER [None]
  - AKINESIA [None]
  - ANGINA PECTORIS [None]
  - AORTIC VALVE SCLEROSIS [None]
  - ARTERIOSCLEROSIS CORONARY ARTERY [None]
  - ASTHENIA [None]
  - ATRIAL FIBRILLATION [None]
  - ATRIAL FLUTTER [None]
  - BLOOD CREATININE INCREASED [None]
  - BLOOD LACTATE DEHYDROGENASE INCREASED [None]
  - BLOOD PRESSURE SYSTOLIC INCREASED [None]
  - BLOOD UREA INCREASED [None]
  - CORONARY ARTERY STENOSIS [None]
  - DISORIENTATION [None]
  - EXTRASYSTOLES [None]
  - GENERAL PHYSICAL HEALTH DETERIORATION [None]
  - HAEMATEMESIS [None]
  - HAEMOGLOBIN DECREASED [None]
  - HYPERTENSIVE HEART DISEASE [None]
  - MYOPATHY [None]
  - PANCREAS LIPOMATOSIS [None]
  - PNEUMONIA [None]
  - POST PROCEDURAL COMPLICATION [None]
  - PSYCHOMOTOR RETARDATION [None]
  - RENAL CYST [None]
  - SCAR PAIN [None]
  - VENTRICULAR HYPERTROPHY [None]
  - VENTRICULAR HYPOKINESIA [None]
  - WHITE BLOOD CELL COUNT INCREASED [None]
